FAERS Safety Report 16918026 (Version 1)
Quarter: 2019Q4

REPORT INFORMATION
  Report Type: Spontaneous
  Country: US (occurrence: US)
  Receive Date: 20191015
  Receipt Date: 20191015
  Transmission Date: 20200122
  Serious: Yes (Hospitalization, Other)
  Sender: FDA-Public Use
  Company Number: US-SA-2019SA279563

PATIENT
  Age: 75 Year
  Sex: Female

DRUGS (1)
  1. ZANTAC 150 (RANITIDINE HYDROCHLORIDE) [Suspect]
     Active Substance: RANITIDINE HYDROCHLORIDE
     Indication: REFLUX GASTRITIS
     Dosage: 150 MG, QD, ONCE A DAY
     Route: 065

REACTIONS (2)
  - Abdominal discomfort [Recovering/Resolving]
  - Gallbladder cancer [Recovering/Resolving]

NARRATIVE: CASE EVENT DATE: 201605
